FAERS Safety Report 8524756-1 (Version None)
Quarter: 2012Q3

REPORT INFORMATION
  Report Type: 
  Country: None (occurrence: None)
  Receive Date: 20120720
  Receipt Date: 20120706
  Transmission Date: 20120928
  Serious: Yes (Hospitalization, Other)
  Sender: FDA-Public Use
  Company Number: HU-ELI_LILLY_AND_COMPANY-HU201206000687

PATIENT
  Age: 62 Year
  Sex: Female

DRUGS (2)
  1. MADOPAR [Concomitant]
  2. OLANZAPINE [Suspect]
     Dosage: 300 MG, MONTHLY (1/M)
     Route: 030
     Dates: start: 20120303

REACTIONS (7)
  - DYSARTHRIA [None]
  - STUPOR [None]
  - INFLAMMATION [None]
  - BLOOD PRESSURE INCREASED [None]
  - SOMNOLENCE [None]
  - PYREXIA [None]
  - PLEURAL EFFUSION [None]
